FAERS Safety Report 8310091-3 (Version None)
Quarter: 2012Q2

REPORT INFORMATION
  Report Type: 
  Country: None (occurrence: None)
  Receive Date: 20120423
  Receipt Date: 20120409
  Transmission Date: 20120825
  Serious: Yes (Hospitalization)
  Sender: FDA-Public Use
  Company Number: UTC-017510

PATIENT
  Age: 63 Year
  Sex: Female
  Weight: 62.72 kg

DRUGS (1)
  1. REMODULIN [Suspect]
     Indication: PULMONARY ARTERIAL HYPERTENSION
     Dosage: 151.2 UG/KG (0.105 UG/KG, 1 IN 1 MIN), INTRAVENOUS
     Route: 042

REACTIONS (1)
  - FLUID RETENTION [None]
